FAERS Safety Report 4396460-5 (Version None)
Quarter: 2004Q2

REPORT INFORMATION
  Report Type: 
  Country: None (occurrence: None)
  Receive Date: 20040621
  Receipt Date: 20040120
  Transmission Date: 20050107
  Serious: Yes (Other)
  Sender: FDA-Public Use
  Company Number: USA-2002-0003140

PATIENT
  Age: 39 Year
  Sex: Female

DRUGS (2)
  1. OXYCONTIN [Suspect]
     Indication: PAIN
     Dosage: 40 MG, TID, ORAL
     Route: 048
  2. BACLOFEN [Concomitant]

REACTIONS (6)
  - AMNESIA [None]
  - DRUG DEPENDENCE [None]
  - DRUG WITHDRAWAL SYNDROME [None]
  - MAJOR DEPRESSION [None]
  - PAIN [None]
  - TOOTH LOSS [None]
